FAERS Safety Report 7264504-9 (Version None)
Quarter: 2011Q1

REPORT INFORMATION
  Report Type: 
  Country: None (occurrence: None)
  Receive Date: 20110131
  Receipt Date: 20110128
  Transmission Date: 20110831
  Serious: No
  Sender: FDA-Public Use
  Company Number: US-PFIZER INC-2010178003

PATIENT
  Sex: Male
  Weight: 74.83 kg

DRUGS (4)
  1. LIPITOR [Suspect]
     Dosage: 20 MG, UNK
  2. LIPITOR [Suspect]
     Dosage: 10 MG, UNK
     Route: 048
  3. LIPITOR [Suspect]
     Dosage: 40 MG, UNK
  4. LIPITOR [Suspect]
     Dosage: 60 MG, UNK

REACTIONS (1)
  - DIARRHOEA [None]
